FAERS Safety Report 8455481 (Version 3)
Quarter: 2014Q3

REPORT INFORMATION
  Report Type: Report from Study
  Country: AU (occurrence: AU)
  Receive Date: 20120313
  Receipt Date: 20140716
  Transmission Date: 20150326
  Serious: Yes (Hospitalization, Other)
  Sender: FDA-Public Use
  Company Number: AU-SANOFI-AVENTIS-2012SA015432

PATIENT
  Age: 71 Year
  Sex: Male

DRUGS (6)
  1. NOVORAPID [Concomitant]
     Active Substance: INSULIN ASPART
  2. ISOPTIN [Concomitant]
     Active Substance: VERAPAMIL HYDROCHLORIDE
  3. TAMSULOSIN HYDROCHLORIDE. [Concomitant]
     Active Substance: TAMSULOSIN HYDROCHLORIDE
  4. DIAFORMIN [Concomitant]
     Active Substance: METFORMIN HYDROCHLORIDE
  5. ARAVA [Suspect]
     Active Substance: LEFLUNOMIDE
     Indication: PRODUCT USED FOR UNKNOWN INDICATION
     Route: 048
     Dates: start: 20101105
  6. ACETYLSALICYLIC ACID [Concomitant]
     Active Substance: ASPIRIN

REACTIONS (7)
  - Pain in extremity [Not Recovered/Not Resolved]
  - Peroneal nerve palsy [Not Recovered/Not Resolved]
  - Pancreatitis [Recovering/Resolving]
  - Finger deformity [Not Recovered/Not Resolved]
  - Pulmonary embolism [Recovering/Resolving]
  - Hand deformity [Not Recovered/Not Resolved]
  - Arthritis [Not Recovered/Not Resolved]

NARRATIVE: CASE EVENT DATE: 201112
